FAERS Safety Report 19793321 (Version 5)
Quarter: 2023Q1

REPORT INFORMATION
  Report Type: Report from Study
  Country: SE (occurrence: SE)
  Receive Date: 20210906
  Receipt Date: 20230224
  Transmission Date: 20230418
  Serious: Yes (Other)
  Sender: FDA-Public Use
  Company Number: NVSC2021SE196788

PATIENT
  Age: 80 Year
  Sex: Female

DRUGS (4)
  1. BROLUCIZUMAB [Suspect]
     Active Substance: BROLUCIZUMAB
     Indication: Neovascular age-related macular degeneration
     Dosage: 0.05 ML, ONCE/SINGLE
     Route: 031
     Dates: start: 20210503, end: 20210623
  2. FELODIPINE [Concomitant]
     Active Substance: FELODIPINE
     Indication: Hypertension
     Dosage: 5 MG
     Route: 065
     Dates: start: 20210327
  3. HYALURONATE SODIUM [Concomitant]
     Active Substance: HYALURONATE SODIUM
     Indication: Dry eye
     Dosage: UNK
     Route: 065
     Dates: start: 20200115
  4. VITAMIN A PALMITATE [Concomitant]
     Active Substance: VITAMIN A PALMITATE
     Indication: Dry eye
     Dosage: UNK
     Route: 065
     Dates: start: 20200115

REACTIONS (1)
  - Retinal occlusive vasculitis [Recovered/Resolved with Sequelae]

NARRATIVE: CASE EVENT DATE: 20210818
